FAERS Safety Report 21739305 (Version 1)
Quarter: 2022Q4

REPORT INFORMATION
  Report Type: Spontaneous
  Country: US (occurrence: None)
  Receive Date: 20221215
  Receipt Date: 20221215
  Transmission Date: 20230113
  Serious: Yes (Hospitalization)
  Sender: FDA-Public Use
  Company Number: None

PATIENT
  Sex: Female

DRUGS (1)
  1. IBRANCE [Suspect]
     Active Substance: PALBOCICLIB
     Indication: Breast cancer female
     Dosage: 100MG  BY MOUTH?ONCE DAILY FOR 21 DAYS, THET1 OFF 7 DAYS?
     Route: 048
     Dates: start: 202102

REACTIONS (1)
  - Hospitalisation [None]
